FAERS Safety Report 8977003 (Version 1)
Quarter: 2012Q4

REPORT INFORMATION
  Report Type: 
  Country: US (occurrence: US)
  Receive Date: 20121220
  Receipt Date: 20121220
  Transmission Date: 20130627
  Serious: No
  Sender: FDA-Public Use
  Company Number: US-GLAXOSMITHKLINE-A0981706A

PATIENT
  Age: 63 Year
  Sex: Male

DRUGS (2)
  1. SORIATANE [Suspect]
  2. NO CONCURRENT MEDICATION [Concomitant]

REACTIONS (1)
  - Blood cholesterol increased [Not Recovered/Not Resolved]
